FAERS Safety Report 7536954-4 (Version None)
Quarter: 2011Q2

REPORT INFORMATION
  Report Type: 
  Country: None (occurrence: None)
  Receive Date: 20110608
  Receipt Date: 20110608
  Transmission Date: 20111010
  Serious: Yes (Death)
  Sender: FDA-Public Use
  Company Number: None

PATIENT
  Age: 70 Year
  Sex: Male

DRUGS (14)
  1. REVLIMID [Suspect]
     Indication: MULTIPLE MYELOMA
     Dosage: REVLIMID 15 MG DAILY ORALLY
     Route: 048
     Dates: start: 20091001, end: 20100301
  2. REVLIMID [Suspect]
     Indication: MULTIPLE MYELOMA
     Dosage: REVLIMID 15 MG DAILY ORALLY
     Route: 048
     Dates: start: 20080701, end: 20090301
  3. REVLIMID [Suspect]
     Indication: MULTIPLE MYELOMA
     Dosage: REVLIMID 15 MG DAILY ORALLY
     Route: 048
     Dates: start: 20101201
  4. MORPHINE [Concomitant]
  5. ALLOPURINOL [Concomitant]
  6. ASPIRIN [Concomitant]
  7. GLIPIZIDE [Concomitant]
  8. APAP TAB [Concomitant]
  9. FUROSEMIDE [Concomitant]
  10. HALOPERIDOL [Concomitant]
  11. LORAZEPAM [Concomitant]
  12. TERAZOSIN HCL [Concomitant]
  13. KCL CARVEDILOL [Concomitant]
  14. OMEPRAZOLE [Concomitant]

REACTIONS (4)
  - CONDITION AGGRAVATED [None]
  - BLOOD CREATININE INCREASED [None]
  - MULTIPLE MYELOMA [None]
  - CONFUSIONAL STATE [None]
